FAERS Safety Report 16941133 (Version 1)
Quarter: 2019Q4

REPORT INFORMATION
  Report Type: Spontaneous
  Country: US (occurrence: US)
  Receive Date: 20191021
  Receipt Date: 20191021
  Transmission Date: 20200122
  Serious: No
  Sender: FDA-Public Use
  Company Number: US-FRESENIUS KABI-FK201911485

PATIENT
  Age: 14 Month
  Sex: Male

DRUGS (3)
  1. SMOFLIPID [Suspect]
     Active Substance: FISH OIL\MEDIUM-CHAIN TRIGLYCERIDES\OLIVE OIL\SOYBEAN OIL
     Indication: PARENTERAL NUTRITION
     Dosage: MAXED OUT
     Route: 065
  2. NO DRUG NAME [Concomitant]
     Indication: PARENTERAL NUTRITION
     Dosage: MAXED OUT
     Route: 065
  3. GLUCOSE [Concomitant]
     Active Substance: DEXTROSE
     Indication: PARENTERAL NUTRITION
     Dosage: MAXED OUT
     Route: 065

REACTIONS (2)
  - Failure to thrive [Unknown]
  - Product use issue [Unknown]
